FAERS Safety Report 7801358-3 (Version None)
Quarter: 2011Q4

REPORT INFORMATION
  Report Type: 
  Country: None (occurrence: None)
  Receive Date: 20111006
  Receipt Date: 20111006
  Transmission Date: 20120403
  Serious: Yes (Hospitalization)
  Sender: FDA-Public Use
  Company Number: None

PATIENT
  Age: 55 Year
  Sex: Female
  Weight: 100.3 kg

DRUGS (9)
  1. LOVASTATIN [Concomitant]
  2. ASPIRIN [Concomitant]
  3. GLIPIZIDE [Concomitant]
  4. CODEINE PHOSPHATE AND ACETAMINOPHEN [Concomitant]
  5. METFORMIN HYDROCHLORIDE [Concomitant]
  6. LISINOPRIL [Concomitant]
  7. SOTALOL HCL [Suspect]
     Indication: TACHYARRHYTHMIA
     Dosage: 120MG BID PO  RECENT
     Route: 048
  8. LACTULOSE [Concomitant]
  9. DOCUSATE [Concomitant]

REACTIONS (7)
  - RENAL FAILURE ACUTE [None]
  - HYPERTENSION [None]
  - VOMITING [None]
  - VISION BLURRED [None]
  - ATRIAL FIBRILLATION [None]
  - BRADYCARDIA [None]
  - NAUSEA [None]
